FAERS Safety Report 19495678 (Version 1)
Quarter: 2021Q3

REPORT INFORMATION
  Report Type: Spontaneous
  Country: US (occurrence: US)
  Receive Date: 20210702
  Receipt Date: 20210702
  Transmission Date: 20211014
  Serious: No
  Sender: FDA-Public Use
  Company Number: None

PATIENT
  Age: 24 Year
  Sex: Female
  Weight: 58.97 kg

DRUGS (1)
  1. REGEN?COV [Suspect]
     Active Substance: CASIRIVIMAB\IMDEVIMAB
     Indication: COVID-19
     Dosage: ?          OTHER FREQUENCY:ONCE;?
     Route: 042
     Dates: start: 20210701, end: 20210701

REACTIONS (5)
  - Wheezing [None]
  - Urticaria [None]
  - Therapy cessation [None]
  - Cough [None]
  - Obstructive airways disorder [None]

NARRATIVE: CASE EVENT DATE: 20210701
